FAERS Safety Report 9161449 (Version 1)
Quarter: 2013Q1

REPORT INFORMATION
  Report Type: Report from Study
  Country: US (occurrence: US)
  Receive Date: 20130313
  Receipt Date: 20130313
  Transmission Date: 20140127
  Serious: Yes (Hospitalization)
  Sender: FDA-Public Use
  Company Number: US-PFIZER INC-2013075391

PATIENT
  Age: 66 Year
  Sex: Male
  Weight: 92.4 kg

DRUGS (5)
  1. BLINDED CELECOXIB [Suspect]
     Indication: NON-SMALL CELL LUNG CANCER
     Dosage: CYCLES 1-6: 400 MG PO BID DAYS 1 TO 21; CYCLE 7+: 400 MG PO BID DAYS 1 TO 21
     Route: 048
     Dates: start: 20130212
  2. BLINDED NO SUBJECT DRUG [Suspect]
     Indication: NON-SMALL CELL LUNG CANCER
     Dosage: CYCLES 1-6: 400 MG PO BID DAYS 1 TO 21; CYCLE 7+: 400 MG PO BID DAYS 1 TO 21
     Route: 048
     Dates: start: 20130212
  3. BLINDED PLACEBO [Suspect]
     Indication: NON-SMALL CELL LUNG CANCER
     Dosage: CYCLES 1-6: 400 MG PO BID DAYS 1 TO 21; CYCLE 7+: 400 MG PO BID DAYS 1 TO 21
     Route: 048
     Dates: start: 20130212
  4. CARBOPLATIN [Suspect]
     Indication: NON-SMALL CELL LUNG CANCER
     Dosage: CYCLES 1-6: CARBOPLATIN AUC: 5.5 IV DAY 1 (AUC WAS 5.0 WITH PRIOR CHEST RADIOTHERAPY)
     Route: 042
     Dates: start: 20130212
  5. GEMCITABINE HYDROCHLORIDE [Suspect]
     Indication: NON-SMALL CELL LUNG CANCER
     Dosage: CYCLES 1-6: 1000 MG/M2 IV DAYS 1 AND 8
     Route: 042
     Dates: start: 20130212

REACTIONS (3)
  - Neutrophil count decreased [Recovering/Resolving]
  - Lung infection [Recovering/Resolving]
  - Dyspnoea [Recovering/Resolving]
